FAERS Safety Report 19057112 (Version 1)
Quarter: 2021Q1

REPORT INFORMATION
  Report Type: Spontaneous
  Country: US (occurrence: US)
  Receive Date: 20210325
  Receipt Date: 20210325
  Transmission Date: 20210420
  Serious: Yes (Other)
  Sender: FDA-Public Use
  Company Number: None

PATIENT
  Age: 62 Year
  Sex: Female
  Weight: 77.4 kg

DRUGS (1)
  1. ISOVUE 300 [Suspect]
     Active Substance: IOPAMIDOL
     Indication: IMAGING PROCEDURE
     Dosage: ?          OTHER FREQUENCY:ONCE FOR IMAGING;?
     Route: 040

REACTIONS (2)
  - Documented hypersensitivity to administered product [None]
  - Urticaria [None]

NARRATIVE: CASE EVENT DATE: 20210318
